FAERS Safety Report 8249805-X (Version None)
Quarter: 2012Q2

REPORT INFORMATION
  Report Type: 
  Country: None (occurrence: None)
  Receive Date: 20120402
  Receipt Date: 20120326
  Transmission Date: 20120825
  Serious: Yes (Death, Life-Threatening, Hospitalization, Other)
  Sender: FDA-Public Use
  Company Number: PHHY2011US57584

PATIENT
  Sex: Female
  Weight: 63.492 kg

DRUGS (19)
  1. FOLIC ACID [Concomitant]
     Dosage: UNK UKN, UNK
  2. OMEPRAZOLE [Concomitant]
     Dosage: UNK UKN, UNK
  3. ZOCOR [Concomitant]
     Dosage: UNK UKN, DAILY
  4. NORVASC [Concomitant]
     Dosage: UNK UKN, UNK
  5. ASPIRIN [Concomitant]
     Dosage: UNK UKN, DAILY
     Route: 048
  6. ALBUMIN NOS W/DARBEPOETIN ALFA [Concomitant]
     Dosage: 40 UG, PRN
  7. FLEXERIL [Concomitant]
     Dosage: UNK UKN, UNK
  8. HYDROCHLOROTHIAZIDE [Concomitant]
     Dosage: UNK UKN, UNK
  9. ISOSORBIDE MONONITRATE [Concomitant]
     Dosage: UNK UKN, UNK
  10. EXJADE [Suspect]
     Indication: SERUM FERRITIN INCREASED
     Dosage: 2000 MG, DAILY
     Route: 048
     Dates: start: 20110426
  11. EXJADE [Suspect]
     Dosage: 1000 MG, DAILY
     Route: 048
  12. CYCLOBENZAPRINE HCL [Concomitant]
     Dosage: UNK UKN, PRN
     Route: 048
  13. ARANESP [Concomitant]
     Dosage: 60 U EVERY 2 WEEKS
     Route: 058
     Dates: start: 20111121
  14. EXJADE [Suspect]
     Indication: SICKLE CELL ANAEMIA
     Dosage: 1000 MG, DAILY
     Route: 048
     Dates: start: 20110324
  15. ACTONEL [Concomitant]
     Dosage: UNK UKN, DAILY
     Route: 048
  16. CARVEDILOL [Concomitant]
     Dosage: UNK UKN, DAILY
     Route: 048
  17. PLAVIX [Concomitant]
     Dosage: UNK UKN, UNK
  18. AMLODIPINE [Concomitant]
     Dosage: UNK UKN, DAILY
     Route: 048
  19. SIMVASTATIN [Concomitant]
     Dosage: UNK UKN, UNK

REACTIONS (11)
  - RENAL FAILURE CHRONIC [None]
  - BLOOD PRESSURE SYSTOLIC INCREASED [None]
  - GLOMERULAR FILTRATION RATE DECREASED [None]
  - HAEMATOCRIT DECREASED [None]
  - CHEST PAIN [None]
  - FATIGUE [None]
  - HAEMOGLOBIN DECREASED [None]
  - RENAL IMPAIRMENT [None]
  - PAIN [None]
  - BLOOD PRESSURE DIASTOLIC DECREASED [None]
  - DEATH [None]
